FAERS Safety Report 23821955 (Version 2)
Quarter: 2024Q2

REPORT INFORMATION
  Report Type: Spontaneous
  Country: AU (occurrence: AU)
  Receive Date: 20240506
  Receipt Date: 20240507
  Transmission Date: 20240715
  Serious: Yes (Death)
  Sender: FDA-Public Use
  Company Number: AU-PERRIGO-24AU004306

PATIENT
  Age: 35 Year

DRUGS (6)
  1. ACETAMINOPHEN [Suspect]
     Active Substance: ACETAMINOPHEN
     Indication: Product used for unknown indication
     Dosage: UNK
     Route: 065
  2. OXYCODONE [Suspect]
     Active Substance: OXYCODONE\OXYCODONE HYDROCHLORIDE
  3. TRAMADOL [Suspect]
     Active Substance: TRAMADOL\TRAMADOL HYDROCHLORIDE
  4. CODEINE [Suspect]
     Active Substance: CODEINE
  5. MORPHINE [Suspect]
     Active Substance: MORPHINE
  6. METHAMPHETAMINE [Suspect]
     Active Substance: METHAMPHETAMINE

REACTIONS (1)
  - Accidental overdose [Fatal]

NARRATIVE: CASE EVENT DATE: 20160101
